FAERS Safety Report 13349032 (Version 4)
Quarter: 2017Q2

REPORT INFORMATION
  Report Type: Spontaneous
  Country: IT (occurrence: IT)
  Receive Date: 20170320
  Receipt Date: 20170410
  Transmission Date: 20170830
  Serious: Yes (Death, Hospitalization, Other)
  Sender: FDA-Public Use
  Company Number: IT-CIPLA LTD.-2017IT04171

PATIENT

DRUGS (3)
  1. CLOPIDOGREL [Suspect]
     Active Substance: CLOPIDOGREL BISULFATE
     Indication: ANTIPLATELET THERAPY
     Dosage: 75 MG A DAY
     Route: 065
  2. CARBOPLATIN. [Suspect]
     Active Substance: CARBOPLATIN
     Indication: PLEURAL MESOTHELIOMA MALIGNANT
     Dosage: AUC5
     Route: 065
  3. PEMETREXED. [Suspect]
     Active Substance: PEMETREXED
     Indication: PLEURAL MESOTHELIOMA MALIGNANT
     Dosage: 500 MG/M2, UNK
     Route: 065

REACTIONS (3)
  - Neoplasm progression [Unknown]
  - Peripheral ischaemia [Recovered/Resolved]
  - Death [Fatal]
